FAERS Safety Report 4745826-X (Version None)
Quarter: 2005Q3

REPORT INFORMATION
  Report Type: 
  Country: None (occurrence: None)
  Receive Date: 20050815
  Receipt Date: 20050815
  Transmission Date: 20060218
  Serious: Yes (Hospitalization)
  Sender: FDA-Public Use
  Company Number: None

PATIENT
  Sex: Male
  Weight: 108.8633 kg

DRUGS (1)
  1. KETEK [Suspect]
     Indication: OTITIS MEDIA
     Dosage: 400MG  QD   ORAL
     Route: 048
     Dates: start: 20050908, end: 20050912

REACTIONS (1)
  - PANCREATITIS ACUTE [None]
